FAERS Safety Report 24530720 (Version 1)
Quarter: 2024Q4

REPORT INFORMATION
  Report Type: Report from Study
  Country: ZA (occurrence: ZA)
  Receive Date: 20241021
  Receipt Date: 20241021
  Transmission Date: 20250115
  Serious: Yes (Hospitalization)
  Sender: SANOFI AVENTIS
  Company Number: ZA-SA-SAC20240327000498

PATIENT
  Age: 65 Year
  Sex: Male

DRUGS (1)
  1. INSULIN GLARGINE [Suspect]
     Active Substance: INSULIN GLARGINE
     Indication: Type 2 diabetes mellitus
     Dosage: 25 IU, QD
     Route: 058
     Dates: start: 20240319, end: 20240930

REACTIONS (12)
  - Pancreatic disorder [Not Recovered/Not Resolved]
  - Post procedural infection [Recovering/Resolving]
  - Pancreaticoduodenectomy [Recovering/Resolving]
  - Injection site scab [Not Recovered/Not Resolved]
  - Injection site pruritus [Not Recovered/Not Resolved]
  - Injection site pain [Not Recovered/Not Resolved]
  - Paraesthesia [Not Recovered/Not Resolved]
  - Blood glucose increased [Recovered/Resolved]
  - Procedural vomiting [Recovering/Resolving]
  - Weight decreased [Unknown]
  - Multiple use of single-use product [Unknown]
  - Intentional dose omission [Unknown]

NARRATIVE: CASE EVENT DATE: 20240101
